FAERS Safety Report 8215073-8 (Version None)
Quarter: 2012Q1

REPORT INFORMATION
  Report Type: 
  Country: None (occurrence: None)
  Receive Date: 20120316
  Receipt Date: 20120302
  Transmission Date: 20120608
  Serious: Yes (Death)
  Sender: FDA-Public Use
  Company Number: TW-AMGEN-TWNSP2012009963

PATIENT
  Age: 66 Year
  Sex: Female

DRUGS (3)
  1. CELEBREX [Concomitant]
     Dosage: UNK
  2. PREDNISOLONE [Concomitant]
     Dosage: UNK
  3. ENBREL [Suspect]
     Indication: RHEUMATOID ARTHRITIS
     Dosage: 25 MG, 2X/WEEK
     Dates: start: 20111112

REACTIONS (1)
  - MYOCARDIAL INFARCTION [None]
